FAERS Safety Report 7525750-X (Version None)
Quarter: 2011Q2

REPORT INFORMATION
  Report Type: 
  Country: None (occurrence: None)
  Receive Date: 20110606
  Receipt Date: 20110523
  Transmission Date: 20111010
  Serious: Yes (Other)
  Sender: FDA-Public Use
  Company Number: PHHY2011US29056

PATIENT
  Sex: Female
  Weight: 62.585 kg

DRUGS (6)
  1. ZOMETA [Suspect]
     Dosage: UNK
     Route: 042
     Dates: start: 20100830, end: 20110322
  2. FEMARA [Concomitant]
     Dosage: 2.5 MG, DAILY
  3. VICODIN [Concomitant]
     Dosage: UNK
  4. LOPRESSOR [Concomitant]
     Dosage: 50 MG, UNK
  5. CALCIMATE [Concomitant]
  6. CHONDROITIN SULFATE [Concomitant]
     Dosage: UNK

REACTIONS (4)
  - BONE PAIN [None]
  - GAIT DISTURBANCE [None]
  - CONSTIPATION [None]
  - OSTEONECROSIS [None]
